FAERS Safety Report 9648713 (Version 1)
Quarter: 2013Q4

REPORT INFORMATION
  Report Type: Spontaneous
  Country: US (occurrence: US)
  Receive Date: 20131028
  Receipt Date: 20131028
  Transmission Date: 20140711
  Serious: No
  Sender: FDA-Public Use
  Company Number: US-BAUSCH-BL-2013-005068

PATIENT
  Age: 67 Year
  Sex: Male
  Weight: 77.18 kg

DRUGS (4)
  1. PROLENSA (BROMFENAC OPHTHALMIC SOLUTION) 0.07% [Suspect]
     Indication: EYE INFLAMMATION
     Dosage: 1 DROP; RIGHT EYE; ONCE
     Route: 047
     Dates: start: 20130909, end: 20130909
  2. PROLENSA (BROMFENAC OPHTHALMIC SOLUTION) 0.07% [Suspect]
     Dosage: 1 DROP; LEFT EYE; ONCE
     Route: 047
     Dates: start: 20130909, end: 20130909
  3. PREDNISONE [Concomitant]
     Indication: HYPERSENSITIVITY
  4. VYTORIN [Concomitant]
     Indication: BLOOD CHOLESTEROL INCREASED

REACTIONS (1)
  - Blood glucose fluctuation [Recovered/Resolved]
